FAERS Safety Report 25458129 (Version 1)
Quarter: 2025Q2

REPORT INFORMATION
  Report Type: Spontaneous
  Country: US (occurrence: None)
  Receive Date: 20250620
  Receipt Date: 20250620
  Transmission Date: 20250717
  Serious: Yes (Hospitalization)
  Sender: EMMAUS LIFE SCIENCES
  Company Number: US-Emmaus Medical, Inc.-EMM202408-000394

PATIENT
  Age: 45 Year
  Sex: Male

DRUGS (4)
  1. ENDARI [Suspect]
     Active Substance: GLUTAMINE
     Indication: Sickle cell anaemia with crisis
     Route: 048
     Dates: start: 202301
  2. ENDARI [Suspect]
     Active Substance: GLUTAMINE
     Indication: Abdominal pain
  3. ENDARI [Suspect]
     Active Substance: GLUTAMINE
     Indication: Sickle cell disease
  4. DEFERASIROX [Concomitant]
     Active Substance: DEFERASIROX
     Indication: Product used for unknown indication
     Route: 065

REACTIONS (1)
  - Hospitalisation [Unknown]

NARRATIVE: CASE EVENT DATE: 20240101
